FAERS Safety Report 22291646 (Version 1)
Quarter: 2023Q2

REPORT INFORMATION
  Report Type: Spontaneous
  Country: US (occurrence: US)
  Receive Date: 20230507
  Receipt Date: 20230507
  Transmission Date: 20230721
  Serious: Yes (Other)
  Sender: FDA-Public Use
  Company Number: US-AUROBINDO-AUR-APL-2023-034044

PATIENT
  Age: 34 Year
  Sex: Male

DRUGS (9)
  1. CYCLOPHOSPHAMIDE [Suspect]
     Active Substance: CYCLOPHOSPHAMIDE
     Indication: Acute lymphocytic leukaemia
     Dosage: UNK
     Route: 065
  2. DEXAMETHASONE [Suspect]
     Active Substance: DEXAMETHASONE
     Indication: Acute lymphocytic leukaemia
     Dosage: UNK
     Route: 065
  3. INOTUZUMAB OZOGAMICIN [Suspect]
     Active Substance: INOTUZUMAB OZOGAMICIN
     Indication: Acute lymphocytic leukaemia
     Dosage: 0.6 MILLIGRAM/SQ. METER
     Route: 065
  4. INOTUZUMAB OZOGAMICIN [Suspect]
     Active Substance: INOTUZUMAB OZOGAMICIN
     Dosage: 0.3 MILLIGRAM/SQ. METER
     Route: 065
  5. RITUXIMAB [Suspect]
     Active Substance: RITUXIMAB
     Indication: Acute lymphocytic leukaemia
     Dosage: UNK
     Route: 065
  6. VINCRISTINE [Suspect]
     Active Substance: VINCRISTINE
     Indication: Acute lymphocytic leukaemia
     Dosage: UNK
     Route: 065
  7. DASATINIB [Concomitant]
     Active Substance: DASATINIB
     Indication: B-cell type acute leukaemia
     Dosage: UNK
     Route: 065
  8. BLINATUMOMAB [Concomitant]
     Active Substance: BLINATUMOMAB
     Indication: B-cell type acute leukaemia
     Dosage: UNK
     Route: 065
  9. PONATINIB [Concomitant]
     Active Substance: PONATINIB
     Indication: B-cell type acute leukaemia
     Dosage: UNK
     Route: 065

REACTIONS (1)
  - Pancytopenia [Unknown]
